FAERS Safety Report 16987178 (Version 2)
Quarter: 2019Q4

REPORT INFORMATION
  Report Type: Spontaneous
  Country: US (occurrence: US)
  Receive Date: 20191104
  Receipt Date: 20191121
  Transmission Date: 20200122
  Serious: Yes (Other)
  Sender: FDA-Public Use
  Company Number: US-LUPIN PHARMACEUTICALS INC.-2019-07012

PATIENT
  Age: 71 Year
  Sex: Male

DRUGS (1)
  1. CARVEDILOL. [Suspect]
     Active Substance: CARVEDILOL
     Indication: SYSTOLIC ANTERIOR MOTION OF MITRAL VALVE
     Dosage: 6.25 MILLIGRAM, BID
     Route: 048

REACTIONS (2)
  - Toxicity to various agents [Unknown]
  - Shock [Unknown]
